FAERS Safety Report 7456676-8 (Version None)
Quarter: 2011Q2

REPORT INFORMATION
  Report Type: 
  Country: None (occurrence: None)
  Receive Date: 20110503
  Receipt Date: 20100503
  Transmission Date: 20111010
  Serious: No
  Sender: FDA-Public Use
  Company Number: US-SANOFI-AVENTIS-2010SA026059

PATIENT
  Age: 37 Year
  Sex: Female

DRUGS (2)
  1. LANTUS [Suspect]
  2. APIDRA [Suspect]
     Dosage: WITH MEALS
     Route: 058

REACTIONS (1)
  - SINUSITIS [None]
